FAERS Safety Report 9611515 (Version 1)
Quarter: 2013Q4

REPORT INFORMATION
  Report Type: Spontaneous
  Country: US (occurrence: US)
  Receive Date: 20131010
  Receipt Date: 20131010
  Transmission Date: 20140711
  Serious: No
  Sender: FDA-Public Use
  Company Number: US-009507513-1309USA013325

PATIENT
  Age: 48 Year
  Sex: Female

DRUGS (2)
  1. PEGINTRON [Suspect]
     Indication: HEPATITIS C
     Dosage: ONCE WEEKLY
     Route: 058
  2. VICTRELIS [Suspect]
     Route: 048

REACTIONS (1)
  - Cough [Unknown]
